FAERS Safety Report 8879547 (Version 1)
Quarter: 2012Q4

REPORT INFORMATION
  Report Type: 
  Country: JP (occurrence: JP)
  Receive Date: 20121101
  Receipt Date: 20121101
  Transmission Date: 20130627
  Serious: Yes (Hospitalization)
  Sender: FDA-Public Use
  Company Number: JP-ASTELLAS-2012JP010112

PATIENT
  Sex: Female

DRUGS (2)
  1. PROGRAF [Suspect]
     Indication: RHEUMATOID ARTHRITIS
     Dosage: 1 mg, UID/QD
     Route: 048
  2. RHEUMATREX                         /00113801/ [Suspect]
     Dosage: 8 mg, Unknown/D
     Route: 048

REACTIONS (3)
  - Intentional drug misuse [Unknown]
  - Dehydration [Recovering/Resolving]
  - Shock [Recovering/Resolving]
